FAERS Safety Report 8267947-X (Version None)
Quarter: 2012Q2

REPORT INFORMATION
  Report Type: 
  Country: None (occurrence: None)
  Receive Date: 20120409
  Receipt Date: 20120402
  Transmission Date: 20120825
  Serious: Yes (Hospitalization)
  Sender: FDA-Public Use
  Company Number: PHHO2012IT005335

PATIENT
  Sex: Female

DRUGS (9)
  1. METHYLPREDNISOLONE [Concomitant]
     Dosage: 16 MG, UNK
     Route: 048
     Dates: start: 20110323
  2. TELMISARTAN [Concomitant]
     Indication: HYPERTENSION
     Dosage: 20 MG, UNK
     Route: 048
     Dates: start: 20110930
  3. LEVOTHYROXINE SODIUM [Concomitant]
     Dosage: 50 MCG
     Route: 048
     Dates: start: 20110323
  4. BISOPROLOL FUMARATE [Concomitant]
     Indication: HYPERTENSION
     Dosage: 2.5 MG, UNK
     Route: 048
     Dates: start: 20110930
  5. ASPIRIN [Concomitant]
     Indication: HYPERTENSION
     Dosage: 100 MG, UNK
     Route: 048
     Dates: start: 20110930
  6. LETROZOLE [Suspect]
     Indication: BREAST CANCER
     Dosage: 2.5 MG, QD
     Route: 048
     Dates: start: 20100320, end: 20120326
  7. SIMVASTATIN [Concomitant]
     Dosage: 20 MG, UNK
     Route: 048
     Dates: start: 20100210
  8. ESOMEPRAZOLE [Concomitant]
     Dosage: 40 MG, UNK
     Route: 048
     Dates: start: 20110930
  9. CLOPIDOGREL [Concomitant]
     Dosage: 75 MG, UNK
     Route: 048
     Dates: start: 20110930

REACTIONS (3)
  - BACK PAIN [None]
  - SCIATICA [None]
  - SYNCOPE [None]
